FAERS Safety Report 19781572 (Version 1)
Quarter: 2021Q3

REPORT INFORMATION
  Report Type: Spontaneous
  Country: JP (occurrence: JP)
  Receive Date: 20210902
  Receipt Date: 20210902
  Transmission Date: 20211014
  Serious: Yes (Life-Threatening)
  Sender: FDA-Public Use
  Company Number: JP-BAYER-2021-171583

PATIENT
  Age: 89 Year
  Sex: Male

DRUGS (1)
  1. NUBEQA [Suspect]
     Active Substance: DAROLUTAMIDE
     Indication: HORMONE-REFRACTORY PROSTATE CANCER
     Dosage: DAILY DOSE 600 MG
     Route: 048
     Dates: start: 20210526, end: 20210601

REACTIONS (3)
  - Torsade de pointes [Unknown]
  - Chest discomfort [Unknown]
  - Off label use [None]

NARRATIVE: CASE EVENT DATE: 20210526
